FAERS Safety Report 10085650 (Version 1)
Quarter: 2014Q2

REPORT INFORMATION
  Report Type: Spontaneous
  Country: US (occurrence: US)
  Receive Date: 20140418
  Receipt Date: 20140418
  Transmission Date: 20141212
  Serious: Yes (Hospitalization)
  Sender: FDA-Public Use
  Company Number: US-JNJFOC-20140405106

PATIENT
  Age: 28 Year
  Sex: Female
  Weight: 48.08 kg

DRUGS (1)
  1. LEVAQUIN [Suspect]
     Indication: BRONCHITIS
     Route: 048
     Dates: start: 20070416, end: 20070417

REACTIONS (11)
  - Arthralgia [Not Recovered/Not Resolved]
  - Haemoptysis [Not Recovered/Not Resolved]
  - Respiratory failure [Not Recovered/Not Resolved]
  - Pain [Not Recovered/Not Resolved]
  - Bone infarction [Not Recovered/Not Resolved]
  - Weight increased [Recovering/Resolving]
  - Amenorrhoea [Not Recovered/Not Resolved]
  - Keloid scar [Not Recovered/Not Resolved]
  - Interstitial lung disease [Not Recovered/Not Resolved]
  - Cerebrovascular accident [Unknown]
  - Pulmonary fibrosis [Not Recovered/Not Resolved]
